FAERS Safety Report 6345135-1 (Version None)
Quarter: 2009Q3

REPORT INFORMATION
  Report Type: 
  Country: None (occurrence: None)
  Receive Date: 20090909
  Receipt Date: 20070822
  Transmission Date: 20100115
  Serious: Yes (Hospitalization, Other)
  Sender: FDA-Public Use
  Company Number: US-ASTRAZENECA-2006UW05907

PATIENT
  Age: 45 Year
  Sex: Male
  Weight: 97.8 kg

DRUGS (12)
  1. SEROQUEL [Suspect]
     Indication: SLEEP DISORDER
     Dosage: 100-200 MG
     Route: 048
     Dates: start: 20050725
  2. SEROQUEL [Suspect]
     Indication: ANXIETY
     Dosage: 100-200 MG
     Route: 048
     Dates: start: 20050725
  3. RISPERIDONE [Concomitant]
     Dates: start: 20050725
  4. ALPRAZOLAM [Concomitant]
     Route: 048
     Dates: start: 20050725
  5. TEMAZEPAM [Concomitant]
     Dates: start: 20050725
  6. LISINOPRIL [Concomitant]
     Indication: HYPERTENSION
     Route: 048
     Dates: start: 20051216
  7. NIACIN [Concomitant]
     Indication: HYPERLIPIDAEMIA
     Dates: start: 20051216
  8. ETODOLAC [Concomitant]
     Route: 048
     Dates: start: 20051128
  9. GABAPENTIN [Concomitant]
     Dates: start: 20051128
  10. GEMFIBROZIL [Concomitant]
     Dates: start: 20051128
  11. VENLAFAXINE HYDROCHLORIDE [Concomitant]
  12. METHOCARBAMOL [Concomitant]
     Route: 048
     Dates: start: 20060528

REACTIONS (4)
  - DIABETES MELLITUS [None]
  - DIABETES MELLITUS INADEQUATE CONTROL [None]
  - NEUROPATHY PERIPHERAL [None]
  - TYPE 2 DIABETES MELLITUS [None]
